FAERS Safety Report 8480187-4 (Version None)
Quarter: 2012Q2

REPORT INFORMATION
  Report Type: 
  Country: None (occurrence: None)
  Receive Date: 20120629
  Receipt Date: 20120621
  Transmission Date: 20120825
  Serious: Yes (Hospitalization)
  Sender: FDA-Public Use
  Company Number: JP-MERCK-1206USA00724

PATIENT
  Age: 79 Year
  Sex: Male
  Weight: 68 kg

DRUGS (5)
  1. AMARYL [Concomitant]
     Indication: HYPERGLYCAEMIA
     Route: 048
     Dates: start: 20100101
  2. MICARDIS [Concomitant]
     Indication: HYPERTENSION
     Route: 048
  3. JANUVIA [Suspect]
     Indication: HYPERGLYCAEMIA
     Route: 048
     Dates: start: 20100201
  4. BASEN [Suspect]
     Indication: HYPERGLYCAEMIA
     Route: 048
     Dates: start: 20120330
  5. BUFFERIN [Concomitant]
     Indication: CEREBROVASCULAR ACCIDENT PROPHYLAXIS
     Route: 048
     Dates: start: 19970701

REACTIONS (2)
  - HYPERTHYROIDISM [None]
  - THYROIDITIS [None]
